FAERS Safety Report 14231298 (Version 2)
Quarter: 2018Q1

REPORT INFORMATION
  Report Type: Spontaneous
  Country: US (occurrence: US)
  Receive Date: 20171128
  Receipt Date: 20180208
  Transmission Date: 20180508
  Serious: No
  Sender: FDA-Public Use
  Company Number: US-JNJFOC-20171107737

PATIENT
  Age: 81 Year
  Sex: Female
  Weight: 48.08 kg

DRUGS (5)
  1. WOMENS ROGAINE UNSCENTED [Suspect]
     Active Substance: MINOXIDIL
     Indication: ALOPECIA
     Dosage: HALF CAPFUL AMOUNT
     Route: 061
     Dates: start: 201709
  2. LEVOTHYROXINE. [Concomitant]
     Active Substance: LEVOTHYROXINE
     Indication: HYPOTHYROIDISM
     Route: 065
  3. ESTRADIOL. [Concomitant]
     Active Substance: ESTRADIOL
     Indication: BLOOD OESTROGEN DECREASED
     Route: 065
  4. WOMENS ROGAINE UNSCENTED [Suspect]
     Active Substance: MINOXIDIL
     Route: 061
  5. PROGESTERONE. [Concomitant]
     Active Substance: PROGESTERONE
     Indication: PROGESTERONE DECREASED
     Route: 065

REACTIONS (2)
  - Hair growth abnormal [Not Recovered/Not Resolved]
  - Hair colour changes [Not Recovered/Not Resolved]

NARRATIVE: CASE EVENT DATE: 2017
